FAERS Safety Report 21990672 (Version 2)
Quarter: 2023Q2

REPORT INFORMATION
  Report Type: Spontaneous
  Country: US (occurrence: US)
  Receive Date: 20230214
  Receipt Date: 20230612
  Transmission Date: 20230721
  Serious: Yes (Death, Hospitalization)
  Sender: FDA-Public Use
  Company Number: US-PFIZER INC-PV202300028333

PATIENT
  Age: 75 Year
  Sex: Male
  Weight: 63.492 kg

DRUGS (2)
  1. LORBRENA [Suspect]
     Active Substance: LORLATINIB
     Indication: Lung neoplasm malignant
     Dosage: 75 MG, 1X/DAY
     Dates: start: 20230112, end: 20230228
  2. XARELTO [Concomitant]
     Active Substance: RIVAROXABAN
     Indication: Anticoagulant therapy
     Dosage: 20 MG
     Route: 048
     Dates: start: 20230209, end: 20230224

REACTIONS (7)
  - Cerebrovascular accident [Fatal]
  - Infarction [Fatal]
  - Hallucination [Fatal]
  - Coagulopathy [Recovered/Resolved]
  - Neoplasm progression [Unknown]
  - Confusional state [Unknown]
  - Lymphadenopathy [Unknown]

NARRATIVE: CASE EVENT DATE: 20230126
